FAERS Safety Report 4628066-4 (Version None)
Quarter: 2005Q2

REPORT INFORMATION
  Report Type: 
  Country: None (occurrence: None)
  Receive Date: 20050406
  Receipt Date: 20050301
  Transmission Date: 20051028
  Serious: Yes (Other)
  Sender: FDA-Public Use
  Company Number: US-GLAXOSMITHKLINE-A0547735A

PATIENT
  Age: 67 Year
  Sex: Male

DRUGS (16)
  1. CITRUCEL SUGAR-FREE SUSPENSION ORANGE [Suspect]
     Indication: GASTROINTESTINAL DISORDER
     Route: 048
     Dates: start: 20040101
  2. VITAMIN E [Concomitant]
     Route: 048
  3. MAGNESIUM [Concomitant]
     Route: 048
  4. LEVOXYL [Concomitant]
     Route: 048
  5. BUSPIRONE [Concomitant]
     Indication: MUSCLE RELAXANT THERAPY
     Route: 048
  6. LOVASTATIN [Concomitant]
     Route: 048
  7. PREVACID [Concomitant]
     Indication: DYSPEPSIA
     Route: 048
  8. MICARDIS HCT [Concomitant]
     Route: 048
  9. ADVAIR DISKUS 100/50 [Concomitant]
     Indication: LUNG DISORDER
  10. CELEBREX [Concomitant]
     Indication: ARTHRITIS
     Route: 048
  11. ALLEGRA [Concomitant]
     Indication: HYPERSENSITIVITY
     Route: 048
  12. COENZYME Q10 [Concomitant]
     Indication: VENIPUNCTURE
     Route: 048
  13. TOPROL-XL [Concomitant]
     Route: 048
  14. TRICOR [Concomitant]
     Route: 048
  15. ASPIRIN [Concomitant]
     Route: 048
  16. GLUCOSAMINE [Concomitant]
     Route: 048

REACTIONS (3)
  - BLOOD TRIGLYCERIDES INCREASED [None]
  - GLUCOSE TOLERANCE IMPAIRED [None]
  - WEIGHT DECREASED [None]
